FAERS Safety Report 13676611 (Version 1)
Quarter: 2017Q2

REPORT INFORMATION
  Report Type: Spontaneous
  Country: JP (occurrence: JP)
  Receive Date: 20170622
  Receipt Date: 20170622
  Transmission Date: 20170830
  Serious: Yes (Life-Threatening, Hospitalization, Other)
  Sender: FDA-Public Use
  Company Number: JP-MACLEODS PHARMACEUTICALS US LTD-MAC2017005196

PATIENT

DRUGS (3)
  1. AMLODIPINE BESYLATE. [Suspect]
     Active Substance: AMLODIPINE BESYLATE
     Indication: SUICIDE ATTEMPT
     Dosage: 50 DF, TOTAL (5 MG TABLET)
     Route: 048
  2. CALCIUM GLUCONATE 8.5% [Suspect]
     Active Substance: CALCIUM GLUCONATE
     Indication: PRODUCT USED FOR UNKNOWN INDICATION
     Dosage: 8.5 %, (RATE OF 0.7 ML/KG/H)
     Route: 042
  3. AMLODIPINE BESYLATE. [Suspect]
     Active Substance: AMLODIPINE BESYLATE
     Indication: HYPERTENSION
     Dosage: 5 MG, UNK
     Route: 048

REACTIONS (7)
  - Hyperkalaemia [Recovered/Resolved]
  - Condition aggravated [Recovered/Resolved]
  - Altered state of consciousness [Recovered/Resolved]
  - Hypotension [Recovered/Resolved]
  - Bradycardia [Recovered/Resolved]
  - Acute kidney injury [Recovered/Resolved]
  - Intentional overdose [Recovered/Resolved]
